FAERS Safety Report 5766056-9 (Version None)
Quarter: 2008Q2

REPORT INFORMATION
  Report Type: 
  Country: None (occurrence: None)
  Receive Date: 20080611
  Receipt Date: 20080519
  Transmission Date: 20081010
  Serious: No
  Sender: FDA-Public Use
  Company Number: GB-AVENTIS-200814384GDDC

PATIENT
  Age: 39 Year
  Sex: Female
  Weight: 94 kg

DRUGS (5)
  1. LANTUS [Suspect]
     Route: 058
     Dates: start: 20040101
  2. APIDRA [Concomitant]
     Route: 058
  3. FOLIC ACID [Concomitant]
  4. SIMVASTATIN [Concomitant]
  5. NOVORAPID [Concomitant]
     Route: 058
     Dates: start: 20040101

REACTIONS (1)
  - WEIGHT INCREASED [None]
